FAERS Safety Report 21225107 (Version 1)
Quarter: 2022Q3

REPORT INFORMATION
  Report Type: Spontaneous
  Country: US (occurrence: US)
  Receive Date: 20220817
  Receipt Date: 20220817
  Transmission Date: 20221027
  Serious: Yes (Other)
  Sender: FDA-Public Use
  Company Number: US-OTSUKA-2022_028564

PATIENT
  Age: 20 Year
  Sex: Male

DRUGS (5)
  1. ARIPIPRAZOLE [Suspect]
     Active Substance: ARIPIPRAZOLE
     Indication: Dysphemia
     Dosage: 5 MG, QD
     Route: 065
  2. ARIPIPRAZOLE [Suspect]
     Active Substance: ARIPIPRAZOLE
     Dosage: 30 MG, QD
     Route: 065
  3. ARIPIPRAZOLE [Suspect]
     Active Substance: ARIPIPRAZOLE
     Dosage: 30 MG, QD
     Route: 065
  4. DEUTETRABENAZINE [Concomitant]
     Active Substance: DEUTETRABENAZINE
     Indication: Dysphemia
     Dosage: 6 MG, QD
     Route: 065
  5. DEUTETRABENAZINE [Concomitant]
     Active Substance: DEUTETRABENAZINE
     Dosage: 12 MG, BID
     Route: 065

REACTIONS (3)
  - Tardive dyskinesia [Recovering/Resolving]
  - Weight increased [Recovered/Resolved]
  - Drug effective for unapproved indication [Unknown]
